FAERS Safety Report 7479036-2 (Version None)
Quarter: 2011Q2

REPORT INFORMATION
  Report Type: 
  Country: None (occurrence: None)
  Receive Date: 20110513
  Receipt Date: 20110504
  Transmission Date: 20111010
  Serious: Yes (Hospitalization, Other)
  Sender: FDA-Public Use
  Company Number: PHHY2011TR37968

PATIENT
  Sex: Female

DRUGS (3)
  1. WARFARIN SODIUM [Suspect]
     Dosage: 5 MG/DAY
  2. ENALAPRIL [Concomitant]
  3. INSULIN [Concomitant]

REACTIONS (14)
  - BLOOD GLUCOSE INCREASED [None]
  - NECROSIS ISCHAEMIC [None]
  - RENAL CYST [None]
  - CHOLELITHIASIS [None]
  - NAUSEA [None]
  - ABDOMINAL DISTENSION [None]
  - PROTHROMBIN TIME PROLONGED [None]
  - OVERDOSE [None]
  - ECCHYMOSIS [None]
  - VOMITING [None]
  - ABDOMINAL PAIN [None]
  - INTERNATIONAL NORMALISED RATIO INCREASED [None]
  - GASTROINTESTINAL HYPOMOTILITY [None]
  - INTESTINAL HAEMATOMA [None]
